FAERS Safety Report 6509649-3 (Version None)
Quarter: 2009Q4

REPORT INFORMATION
  Report Type: 
  Country: None (occurrence: None)
  Receive Date: 20091222
  Receipt Date: 20091216
  Transmission Date: 20100525
  Serious: Yes (Hospitalization)
  Sender: FDA-Public Use
  Company Number: AU-ASTRAZENECA-2009SE32268

PATIENT
  Sex: Female

DRUGS (4)
  1. ATACAND [Suspect]
     Route: 048
  2. ELEVIT RDI [Suspect]
  3. INSULIN NOS [Suspect]
  4. LEXAPRO [Suspect]

REACTIONS (2)
  - AMNIOTIC FLUID VOLUME DECREASED [None]
  - DRUG EXPOSURE DURING PREGNANCY [None]
